FAERS Safety Report 8550568-9 (Version None)
Quarter: 2012Q3

REPORT INFORMATION
  Report Type: 
  Country: None (occurrence: None)
  Receive Date: 20120730
  Receipt Date: 20120718
  Transmission Date: 20120928
  Serious: Yes (Other)
  Sender: FDA-Public Use
  Company Number: GB-CELGENEUS-167-C5013-12071988

PATIENT
  Sex: Male
  Weight: 53.3 kg

DRUGS (10)
  1. THALIDOMIDE [Suspect]
     Indication: MULTIPLE MYELOMA
     Dosage: 50 MILLIGRAM
     Route: 048
     Dates: start: 20100614
  2. MELPHALAN HYDROCHLORIDE [Suspect]
     Indication: MULTIPLE MYELOMA
     Dosage: 12 MILLIGRAM
     Route: 065
     Dates: start: 20100614
  3. ACYCLOVIR [Concomitant]
     Indication: PROPHYLAXIS
     Dosage: 800 MILLIGRAM
     Route: 048
     Dates: start: 20100521
  4. ORAMORPH SR [Concomitant]
     Indication: BACK PAIN
     Dosage: 5-10
     Route: 048
     Dates: start: 20100518
  5. MORPHINE [Concomitant]
     Indication: BACK PAIN
     Dosage: 60 MILLIGRAM
     Route: 048
     Dates: start: 20100620
  6. DOMPERIDONE [Concomitant]
     Dosage: 30 MILLIGRAM
     Route: 048
     Dates: start: 20110313
  7. PREDNISONE [Suspect]
     Indication: MULTIPLE MYELOMA
     Dosage: 125 MILLIGRAM
     Route: 065
     Dates: start: 20100614
  8. OMEPRAZOLE [Concomitant]
     Indication: GASTRITIS PROPHYLAXIS
     Dosage: 20 MILLIGRAM
     Route: 048
     Dates: start: 20100726
  9. ACETAMINOPHEN [Concomitant]
     Indication: BACK PAIN
     Dosage: 4 GRAM
     Route: 048
     Dates: start: 20100101
  10. ZOLEDRONOC ACID [Concomitant]
     Indication: PROPHYLAXIS
     Route: 041
     Dates: start: 20100810

REACTIONS (1)
  - BREAST CANCER METASTATIC [None]
